FAERS Safety Report 5791418-3 (Version None)
Quarter: 2008Q2

REPORT INFORMATION
  Report Type: 
  Country: None (occurrence: None)
  Receive Date: 20080626
  Receipt Date: 20080304
  Transmission Date: 20081010
  Serious: No
  Sender: FDA-Public Use
  Company Number: A0713186A

PATIENT
  Age: 55 Year
  Sex: Female

DRUGS (6)
  1. ALLI [Suspect]
     Dates: end: 20080301
  2. ZYRTEC [Concomitant]
  3. ZOMIG [Concomitant]
  4. LEXAPRO [Concomitant]
  5. MYSOLINE [Concomitant]
  6. SINGULAIR [Concomitant]

REACTIONS (2)
  - MIGRAINE [None]
  - SINUSITIS [None]
